FAERS Safety Report 4507440-0 (Version None)
Quarter: 2004Q4

REPORT INFORMATION
  Report Type: 
  Country: None (occurrence: None)
  Receive Date: 20041118
  Receipt Date: 20041105
  Transmission Date: 20050328
  Serious: Yes (Hospitalization)
  Sender: FDA-Public Use
  Company Number: USA-2004-0017052

PATIENT
  Age: 63 Year
  Sex: Female
  Weight: 82.5 kg

DRUGS (3)
  1. OXYCONTIN [Suspect]
     Indication: CANCER PAIN
  2. VICODIN [Concomitant]
  3. LIDOCAINE [Concomitant]

REACTIONS (4)
  - DRUG INEFFECTIVE [None]
  - HERPES ZOSTER [None]
  - INADEQUATE ANALGESIA [None]
  - PAIN [None]
